FAERS Safety Report 5182947-4 (Version None)
Quarter: 2006Q4

REPORT INFORMATION
  Report Type: 
  Country: None (occurrence: None)
  Receive Date: 20061212
  Receipt Date: 20061201
  Transmission Date: 20070319
  Serious: Yes (Other)
  Sender: FDA-Public Use
  Company Number: 2006144276

PATIENT
  Sex: Male

DRUGS (6)
  1. VIAGRA [Suspect]
     Indication: ERECTILE DYSFUNCTION
     Dosage: 25 MG (25 MG, AS NECESSARY)
     Dates: start: 19960101
  2. LYRICA [Suspect]
     Indication: NEUROPATHY
     Dosage: 200 MG (100 MG, 2 IN 1 D)
     Dates: start: 20060101
  3. MULTI-VITAMINS [Concomitant]
  4. LIPITOR [Suspect]
     Indication: BLOOD CHOLESTEROL INCREASED
     Dates: start: 20060101
  5. IBUPROFEN [Suspect]
     Indication: NEURALGIA
     Dosage: (800 MG)
     Dates: start: 20060101
  6. ANITHYPERTENSIVES (ANTIHYPERTENSIVES) [Suspect]
     Indication: HYPERTENSION
     Dates: start: 19960101

REACTIONS (19)
  - BALANCE DISORDER [None]
  - BLOOD CHOLESTEROL INCREASED [None]
  - COORDINATION ABNORMAL [None]
  - DIABETES MELLITUS [None]
  - DRUG INEFFECTIVE [None]
  - DRUG TOLERANCE [None]
  - DYSPNOEA [None]
  - ERECTILE DYSFUNCTION [None]
  - EUPHORIC MOOD [None]
  - FEELING ABNORMAL [None]
  - FEELING DRUNK [None]
  - HERPES ZOSTER [None]
  - MYALGIA [None]
  - NASAL CONGESTION [None]
  - NEUROPATHY [None]
  - PAIN IN EXTREMITY [None]
  - SHOULDER OPERATION [None]
  - VISION BLURRED [None]
  - VISUAL ACUITY REDUCED [None]
